FAERS Safety Report 12354651 (Version 1)
Quarter: 2016Q2

REPORT INFORMATION
  Report Type: Spontaneous
  Country: US (occurrence: None)
  Receive Date: 20160510
  Receipt Date: 20160510
  Transmission Date: 20160815
  Serious: No
  Sender: FDA-Public Use
  Company Number: None

PATIENT
  Age: 60 Year
  Sex: Male
  Weight: 97.52 kg

DRUGS (1)
  1. MONTELUKAST SODIUM TABLETS, 10 MG BOEHRINGER INGELHEIM [Suspect]
     Active Substance: MONTELUKAST SODIUM
     Indication: ASTHMA
     Route: 048
     Dates: start: 20160401, end: 20160508

REACTIONS (3)
  - Anger [None]
  - Mood swings [None]
  - Abnormal behaviour [None]

NARRATIVE: CASE EVENT DATE: 20160507
